FAERS Safety Report 4532322-8 (Version None)
Quarter: 2004Q4

REPORT INFORMATION
  Report Type: 
  Country: None (occurrence: None)
  Receive Date: 20041206
  Receipt Date: 20040924
  Transmission Date: 20050328
  Serious: Yes (Death)
  Sender: FDA-Public Use
  Company Number: USA040979215

PATIENT
  Age: 23 Year
  Sex: Male

DRUGS (3)
  1. SYMBYAX [Suspect]
     Indication: MAJOR DEPRESSION
     Dates: start: 20040712
  2. CYMBALTA [Suspect]
     Dosage: 60 MG
     Dates: start: 20040831
  3. HYDROCODONE [Concomitant]

REACTIONS (1)
  - COMPLETED SUICIDE [None]
